FAERS Safety Report 9618145 (Version 1)
Quarter: 2013Q4

REPORT INFORMATION
  Report Type: Spontaneous
  Country: FR (occurrence: FR)
  Receive Date: 20131014
  Receipt Date: 20131014
  Transmission Date: 20140711
  Serious: Yes (Hospitalization)
  Sender: FDA-Public Use
  Company Number: FR-ROCHE-1288263

PATIENT
  Age: 85 Year
  Sex: Female

DRUGS (3)
  1. ZELBORAF [Suspect]
     Indication: MALIGNANT MELANOMA
     Route: 048
     Dates: start: 20130907
  2. ZELBORAF [Suspect]
     Dosage: DECREASED DOSETO 2 TABLET IN THE MORNING AND IN THE EVENING.
     Route: 048
     Dates: start: 20130910
  3. ZELBORAF [Suspect]
     Route: 048
     Dates: end: 20130916

REACTIONS (3)
  - Sick sinus syndrome [Recovering/Resolving]
  - Asthenia [Recovered/Resolved]
  - Dyspnoea [Recovered/Resolved]
